FAERS Safety Report 9543439 (Version 3)
Quarter: 2013Q4

REPORT INFORMATION
  Report Type: Spontaneous
  Country: US (occurrence: US)
  Receive Date: 20130923
  Receipt Date: 20131001
  Transmission Date: 20140711
  Serious: Yes (Other)
  Sender: FDA-Public Use
  Company Number: US-PFIZER INC-2013271738

PATIENT
  Age: 64 Year
  Sex: Male
  Weight: 91.16 kg

DRUGS (10)
  1. LYRICA [Suspect]
     Indication: NERVE INJURY
     Dosage: 300 MG, 1X/DAY
     Route: 048
     Dates: start: 200605
  2. LYRICA [Suspect]
     Indication: PAIN
     Dosage: 500 MG, 1X/DAY
  3. LYRICA [Suspect]
     Dosage: 300 MG, 1X/DAY
  4. LYRICA [Suspect]
     Dosage: 150 MG, 1X/DAY
  5. LYRICA [Suspect]
     Dosage: 225 MG, 1X/DAY
  6. LYRICA [Suspect]
     Dosage: 50 MG, 1X/DAY
     Dates: start: 20130812
  7. LYRICA [Suspect]
     Dosage: UNK
     Dates: start: 20130927
  8. CELEBREX [Suspect]
     Dosage: UNK
  9. MORPHINE [Concomitant]
     Indication: PAIN
     Dosage: UNK
  10. OXYCODONE [Concomitant]
     Indication: PAIN
     Dosage: UNK

REACTIONS (10)
  - Loss of consciousness [Unknown]
  - Fall [Unknown]
  - Rotator cuff syndrome [Unknown]
  - Memory impairment [Unknown]
  - Pain [Unknown]
  - Drug effect incomplete [Unknown]
  - Impaired work ability [Unknown]
  - Feeling abnormal [Unknown]
  - Intentional drug misuse [Unknown]
  - Insomnia [Unknown]
